FAERS Safety Report 8782382 (Version 1)
Quarter: 2012Q4

REPORT INFORMATION
  Report Type: 
  Country: US (occurrence: US)
  Receive Date: 20120913
  Receipt Date: 20120913
  Transmission Date: 20130627
  Serious: Yes (Other)
  Sender: FDA-Public Use
  Company Number: CHPA2012US019435

PATIENT
  Age: 41 Year
  Sex: Female

DRUGS (1)
  1. THERAFLU MULTI SYMPTOM SEVERE COLD [Suspect]
     Indication: BRONCHITIS
     Dosage: ACCORDING TO LABEL
     Route: 048
     Dates: end: 20120910

REACTIONS (3)
  - Bronchitis [Not Recovered/Not Resolved]
  - Therapeutic response unexpected [Unknown]
  - Off label use [Unknown]
